FAERS Safety Report 8339138-5 (Version None)
Quarter: 2012Q2

REPORT INFORMATION
  Report Type: 
  Country: None (occurrence: None)
  Receive Date: 20120507
  Receipt Date: 20120501
  Transmission Date: 20120825
  Serious: No
  Sender: FDA-Public Use
  Company Number: US-PFIZER INC-2012107093

PATIENT
  Sex: Female

DRUGS (2)
  1. PRISTIQ [Suspect]
     Dosage: 50 MG, UNK
  2. EFFEXOR [Suspect]
     Dosage: UNK

REACTIONS (4)
  - NERVOUSNESS [None]
  - ASTHENIA [None]
  - DRUG INEFFECTIVE [None]
  - TREMOR [None]
